FAERS Safety Report 20949731 (Version 1)
Quarter: 2022Q2

REPORT INFORMATION
  Report Type: Spontaneous
  Country: US (occurrence: None)
  Receive Date: 20220613
  Receipt Date: 20220613
  Transmission Date: 20220721
  Serious: No
  Sender: FDA-Public Use
  Company Number: 2022A211230

PATIENT
  Age: 72 Year
  Sex: Female

DRUGS (2)
  1. SYMBICORT [Suspect]
     Active Substance: BUDESONIDE\FORMOTEROL FUMARATE DIHYDRATE
     Indication: Hypersensitivity
     Route: 055
     Dates: start: 2020
  2. NYSTATIN [Concomitant]
     Active Substance: NYSTATIN

REACTIONS (4)
  - Weight decreased [Unknown]
  - Candida infection [Not Recovered/Not Resolved]
  - Lip dry [Not Recovered/Not Resolved]
  - Dry mouth [Not Recovered/Not Resolved]

NARRATIVE: CASE EVENT DATE: 20210301
